FAERS Safety Report 23457656 (Version 1)
Quarter: 2024Q1

REPORT INFORMATION
  Report Type: Report from Study
  Country: CA (occurrence: CA)
  Receive Date: 20240130
  Receipt Date: 20240130
  Transmission Date: 20240410
  Serious: Yes (Hospitalization)
  Sender: FDA-Public Use
  Company Number: CA-LUNDBECK-DKLU3073296

PATIENT
  Age: 24 Year
  Sex: Female

DRUGS (1)
  1. VYEPTI [Suspect]
     Active Substance: EPTINEZUMAB-JJMR
     Indication: Migraine
     Route: 041
     Dates: start: 20240126

REACTIONS (5)
  - Flushing [Unknown]
  - Throat irritation [Unknown]
  - Dyspnoea [Unknown]
  - Malaise [Unknown]
  - Sneezing [Unknown]

NARRATIVE: CASE EVENT DATE: 20240126
